FAERS Safety Report 21457459 (Version 1)
Quarter: 2022Q4

REPORT INFORMATION
  Report Type: Spontaneous
  Country: US (occurrence: US)
  Receive Date: 20221014
  Receipt Date: 20221014
  Transmission Date: 20230112
  Serious: No
  Sender: FDA-Public Use
  Company Number: US-009507513-2210USA003324

PATIENT
  Sex: Male

DRUGS (2)
  1. ZOLINZA [Suspect]
     Active Substance: VORINOSTAT
     Indication: Adenoid cystic carcinoma
     Dosage: 4 CAPSULES DAILY
     Dates: start: 202103
  2. ZOLINZA [Suspect]
     Active Substance: VORINOSTAT
     Dosage: 3 CAPSULES DAILY

REACTIONS (5)
  - Incorrect route of product administration [Unknown]
  - Wrong technique in product usage process [Unknown]
  - Product use in unapproved indication [Unknown]
  - Drug effective for unapproved indication [Unknown]
  - No adverse event [Unknown]

NARRATIVE: CASE EVENT DATE: 20210301
